FAERS Safety Report 21584263 (Version 1)
Quarter: 2022Q4

REPORT INFORMATION
  Report Type: Spontaneous
  Country: IN (occurrence: IN)
  Receive Date: 20221111
  Receipt Date: 20221111
  Transmission Date: 20230113
  Serious: Yes (Hospitalization)
  Sender: FDA-Public Use
  Company Number: IN-MYLANLABS-2022M1125028

PATIENT
  Age: 70 Year
  Sex: Female

DRUGS (1)
  1. PANTOPRAZOLE [Suspect]
     Active Substance: PANTOPRAZOLE
     Indication: Gastritis
     Dosage: 40 MILLIGRAM, QD
     Route: 048

REACTIONS (6)
  - Neuropathy peripheral [Recovering/Resolving]
  - Nephrogenic anaemia [Unknown]
  - Hypoalbuminaemia [Unknown]
  - Metabolic acidosis [Unknown]
  - Tubulointerstitial nephritis [Recovering/Resolving]
  - Electrolyte imbalance [Recovering/Resolving]
